FAERS Safety Report 5382677-X (Version None)
Quarter: 2007Q3

REPORT INFORMATION
  Report Type: 
  Country: None (occurrence: None)
  Receive Date: 20070703
  Receipt Date: 20070703
  Transmission Date: 20080115
  Serious: No
  Sender: FDA-Public Use
  Company Number: None

PATIENT
  Sex: Male
  Weight: 83.4619 kg

DRUGS (1)
  1. VIAGRA [Suspect]
     Indication: ERECTILE DYSFUNCTION
     Dosage: SPLIT -25 MG- DAILY PO
     Route: 048
     Dates: start: 20070620, end: 20070625

REACTIONS (1)
  - BLINDNESS UNILATERAL [None]
